FAERS Safety Report 6288846-9 (Version None)
Quarter: 2009Q3

REPORT INFORMATION
  Report Type: 
  Country: None (occurrence: None)
  Receive Date: 20090729
  Receipt Date: 20090717
  Transmission Date: 20100115
  Serious: Yes (Other)
  Sender: FDA-Public Use
  Company Number: US-PFIZER INC-2009231483

PATIENT
  Sex: Female

DRUGS (6)
  1. LYRICA [Suspect]
     Indication: FACIAL PAIN
     Dates: start: 20090121
  2. LYRICA [Suspect]
     Indication: HYPOAESTHESIA
  3. BACLOFEN [Concomitant]
     Dosage: UNK
  4. VITAMIN B COMPLEX CAP [Concomitant]
     Dosage: UNK
  5. ZYRTEC-D 12 HOUR [Concomitant]
     Dosage: UNK
  6. FISH OIL [Concomitant]
     Dosage: UNK

REACTIONS (7)
  - DISSOCIATION [None]
  - DIZZINESS [None]
  - HYPERTENSION [None]
  - NAUSEA [None]
  - ROAD TRAFFIC ACCIDENT [None]
  - VISION BLURRED [None]
  - WEIGHT INCREASED [None]
